FAERS Safety Report 6817823-1 (Version None)
Quarter: 2010Q3

REPORT INFORMATION
  Report Type: 
  Country: None (occurrence: None)
  Receive Date: 20100706
  Receipt Date: 20100701
  Transmission Date: 20110219
  Serious: Yes (Hospitalization)
  Sender: FDA-Public Use
  Company Number: US-MERCK-1006USA03669

PATIENT
  Age: 75 Year
  Sex: Female

DRUGS (2)
  1. COZAAR [Suspect]
     Indication: HYPERTENSION
     Route: 048
     Dates: start: 20100426, end: 20100611
  2. METFORMIN [Concomitant]
     Route: 065

REACTIONS (4)
  - ANXIETY [None]
  - DRUG INTOLERANCE [None]
  - HYPERTENSION [None]
  - PRURITUS [None]
